FAERS Safety Report 9175703 (Version 3)
Quarter: 2014Q1

REPORT INFORMATION
  Report Type: Spontaneous
  Country: US (occurrence: US)
  Receive Date: 20120915
  Receipt Date: 20140205
  Transmission Date: 20141002
  Serious: No
  Sender: FDA-Public Use
  Company Number: US-009507513-1208USA012396

PATIENT
  Sex: Male

DRUGS (4)
  1. REBETOL [Suspect]
     Indication: HEPATITIS C
     Dosage: UNK, BID
     Route: 048
     Dates: start: 20120216, end: 20130220
  2. VICTRELIS [Suspect]
     Indication: HEPATITIS C
     Dosage: UNK, Q8H
     Route: 048
     Dates: start: 20120315, end: 20130220
  3. PEGASYS [Suspect]
     Indication: HEPATITIS C
     Dosage: UNK, QW
     Route: 058
     Dates: start: 20120216, end: 20130220
  4. NEXIUM [Concomitant]
     Dosage: ^I AM AND PM^

REACTIONS (3)
  - Hair texture abnormal [Unknown]
  - Myalgia [Unknown]
  - Arthralgia [Unknown]
